FAERS Safety Report 9387059 (Version 1)
Quarter: 2013Q3

REPORT INFORMATION
  Report Type: Spontaneous
  Country: NL (occurrence: NL)
  Receive Date: 20130708
  Receipt Date: 20130708
  Transmission Date: 20140515
  Serious: Yes (Hospitalization)
  Sender: FDA-Public Use
  Company Number: PHHY2013NL068107

PATIENT
  Sex: Female
  Weight: 81 kg

DRUGS (9)
  1. GALVUS [Suspect]
     Indication: DIABETES MELLITUS
     Dosage: 2 DF (50 MG VALSA) DAILY
     Dates: start: 20130110
  2. GALVUS [Interacting]
     Dosage: 100 MG, ADAY
     Dates: start: 20130226
  3. AMOXICILLIN + CLAVULANATE POTASSIUM [Interacting]
     Indication: URINARY TRACT INFECTION
     Dosage: 1 DF, TID
     Dates: start: 20130410
  4. METFORMINE [Concomitant]
     Dosage: 3 DF, (500 MG) TID
     Dates: start: 20051215
  5. ACENOCOUMAROL [Concomitant]
     Dosage: 1 MG, PRN (ACCORDING TO SHEDULED)
     Dates: start: 20070123
  6. SIMVASTATINE [Concomitant]
     Dosage: 1 DF,(40 MG) QD
     Dates: start: 20070119
  7. TRIMETHOPRIM [Concomitant]
     Dosage: 1 DF, (100 MG) QD
     Dates: start: 20111101
  8. PANTOPRAZOL [Concomitant]
     Dosage: 1 DF,(20 MG) QD
     Dates: start: 20130324
  9. PANTOPRAZOL [Concomitant]
     Dosage: 1 DF, (40 MG), QD
     Dates: start: 20130324

REACTIONS (4)
  - Chest pain [Recovered/Resolved]
  - Abdominal distension [Recovered/Resolved]
  - Nausea [Recovered/Resolved]
  - Flatulence [Recovered/Resolved]
